FAERS Safety Report 5390308-8 (Version None)
Quarter: 2007Q3

REPORT INFORMATION
  Report Type: 
  Country: None (occurrence: None)
  Receive Date: 20070718
  Receipt Date: 20070708
  Transmission Date: 20080115
  Serious: Yes (Other)
  Sender: FDA-Public Use
  Company Number: US-PFIZER INC-2007056983

PATIENT
  Sex: Female
  Weight: 88.636 kg

DRUGS (1)
  1. CHANTIX [Suspect]
     Indication: SMOKING CESSATION THERAPY
     Dates: start: 20070405, end: 20070705

REACTIONS (6)
  - BALANCE DISORDER [None]
  - DRUG PRESCRIBING ERROR [None]
  - DRUG WITHDRAWAL SYNDROME [None]
  - DYSPNOEA [None]
  - PANIC ATTACK [None]
  - PANIC REACTION [None]
